FAERS Safety Report 23018961 (Version 1)
Quarter: 2023Q4

REPORT INFORMATION
  Report Type: Spontaneous
  Country: BR (occurrence: BR)
  Receive Date: 20231003
  Receipt Date: 20231003
  Transmission Date: 20240110
  Serious: Yes (Other)
  Sender: FDA-Public Use
  Company Number: BR-NOVOPROD-1120750

PATIENT
  Sex: Female

DRUGS (2)
  1. OZEMPIC [Suspect]
     Active Substance: SEMAGLUTIDE
     Indication: Product used for unknown indication
     Dosage: SHE USES IN CLICKS(DOCTOR RECOMMENDED 2 APPLICATIONS OF 19 CLICKS, 2 APPLICATIONS OF 36 CLICKS, AND
  2. SAXENDA [Suspect]
     Active Substance: LIRAGLUTIDE
     Indication: Product used for unknown indication
     Dosage: UNK

REACTIONS (2)
  - Blindness unilateral [Not Recovered/Not Resolved]
  - Off label use [Not Recovered/Not Resolved]
